FAERS Safety Report 8779761 (Version 1)
Quarter: 2012Q4

REPORT INFORMATION
  Report Type: Spontaneous
  Country: GB (occurrence: None)
  Receive Date: 20120828
  Receipt Date: 20120828
  Transmission Date: 20130627
  Serious: Yes (Hospitalization)
  Sender: FDA-Public Use
  Company Number: 2012AP002436

PATIENT
  Age: 65 Year
  Sex: Male

DRUGS (11)
  1. RAMIPRIL (RAMIPRIL) [Suspect]
     Indication: HYPERTENSION
     Route: 048
     Dates: start: 20080401, end: 20111116
  2. BISOPROLOL (BISOPROLOL) [Concomitant]
  3. FEXOFENADINE (FEXOFENADINE) [Concomitant]
  4. FUROSEMIDE (FUROSEMIDE) [Concomitant]
  5. HYDROXYCARBAMIDE (HYDROXYCARBAMIDE) [Concomitant]
  6. IPRATROPIUM BROMIDE (IPRATROPIUM BROMIDE) [Concomitant]
  7. OMEPRAZOLE (OMEPRAZOLE) [Concomitant]
  8. SPIRONOLACTONE (SPIRONOLACTONE) [Concomitant]
  9. THIAMINE (THIAMINE) [Concomitant]
  10. WARFARIN (WARFARIN) [Concomitant]
  11. AMLODIPINE (AMLODIPINE) [Concomitant]

REACTIONS (1)
  - Lupus-like syndrome [None]
